FAERS Safety Report 5267305-6 (Version None)
Quarter: 2007Q1

REPORT INFORMATION
  Report Type: 
  Country: None (occurrence: None)
  Receive Date: 20070316
  Receipt Date: 20070308
  Transmission Date: 20070707
  Serious: Yes (Other)
  Sender: FDA-Public Use
  Company Number: GB-GLAXOSMITHKLINE-B0461215A

PATIENT
  Sex: Female

DRUGS (1)
  1. AVANDAMET [Suspect]
     Route: 048

REACTIONS (6)
  - BLISTER [None]
  - FLUID RETENTION [None]
  - HYPOAESTHESIA [None]
  - OSTEOMYELITIS [None]
  - SWELLING [None]
  - ULCER [None]
